FAERS Safety Report 5874451-2 (Version None)
Quarter: 2008Q3

REPORT INFORMATION
  Report Type: 
  Country: None (occurrence: None)
  Receive Date: 20080908
  Receipt Date: 20080827
  Transmission Date: 20090109
  Serious: Yes (Hospitalization)
  Sender: FDA-Public Use
  Company Number: US-PFIZER INC-2008071436

PATIENT
  Sex: Female
  Weight: 100.6 kg

DRUGS (2)
  1. SUTENT [Suspect]
     Indication: RENAL CELL CARCINOMA
     Route: 048
     Dates: start: 20080321, end: 20080815
  2. GEMCITABINE [Suspect]
     Indication: RENAL CELL CARCINOMA
     Dates: start: 20080321, end: 20080807

REACTIONS (2)
  - CHEST PAIN [None]
  - DYSPNOEA [None]
